FAERS Safety Report 23483701 (Version 1)
Quarter: 2024Q1

REPORT INFORMATION
  Report Type: Other
  Country: IL (occurrence: IL)
  Receive Date: 20240205
  Receipt Date: 20240205
  Transmission Date: 20240409
  Serious: Yes (Hospitalization, Other)
  Sender: FDA-Public Use
  Company Number: IL-TARO PHARMACEUTICALS USA INC.-2024TAR00112

PATIENT
  Age: 36 Year
  Sex: Male

DRUGS (1)
  1. COUMADIN [Suspect]
     Active Substance: WARFARIN SODIUM
     Indication: Antiphospholipid syndrome
     Dosage: 5 MG, OD
     Route: 048
     Dates: start: 20231022

REACTIONS (2)
  - Cardiac tamponade [Recovering/Resolving]
  - International normalised ratio increased [Unknown]
